FAERS Safety Report 23840799 (Version 1)
Quarter: 2024Q2

REPORT INFORMATION
  Report Type: Other
  Country: ES (occurrence: ES)
  Receive Date: 20240510
  Receipt Date: 20240510
  Transmission Date: 20240715
  Serious: Yes (Life-Threatening, Hospitalization, Other)
  Sender: FDA-Public Use
  Company Number: None

PATIENT

DRUGS (4)
  1. GABAPENTIN [Interacting]
     Active Substance: GABAPENTIN
     Indication: Pain
     Dosage: 300 MILLIGRAM EVERY DAY
     Route: 048
     Dates: start: 20240327, end: 20240402
  2. ZALDIAR [Interacting]
     Active Substance: ACETAMINOPHEN\TRAMADOL HYDROCHLORIDE
     Indication: Pain
     Dosage: 362.5 MILLIGRAM EVERY 12 HOURS
     Route: 048
     Dates: start: 20240324, end: 20240329
  3. ROBAXIN [Interacting]
     Active Substance: METHOCARBAMOL
     Indication: Pain
     Dosage: 500 MILLIGRAM EVERY 8 HOURS
     Route: 048
     Dates: start: 20240324, end: 20240329
  4. DEXAMETHASONE [Concomitant]
     Active Substance: DEXAMETHASONE
     Indication: Pain
     Dosage: 8 MILLIGRAM PER DAY
     Route: 048
     Dates: start: 20230327, end: 20240229

REACTIONS (2)
  - Atrioventricular block complete [Recovered/Resolved]
  - Drug interaction [Unknown]

NARRATIVE: CASE EVENT DATE: 20240329
